FAERS Safety Report 9238845 (Version 1)
Quarter: 2013Q2

REPORT INFORMATION
  Report Type: Spontaneous
  Country: US (occurrence: None)
  Receive Date: 20130417
  Receipt Date: 20130417
  Transmission Date: 20140414
  Serious: Yes (Other)
  Sender: FDA-Public Use
  Company Number: None

PATIENT
  Age: 47 Year
  Sex: Female
  Weight: 63.5 kg

DRUGS (1)
  1. LUNESTA [Suspect]
     Indication: POOR QUALITY SLEEP
     Route: 048
     Dates: start: 20121030, end: 20130413

REACTIONS (3)
  - Dependence [None]
  - Insomnia [None]
  - Drug withdrawal syndrome [None]
